FAERS Safety Report 5738493-X (Version None)
Quarter: 2008Q2

REPORT INFORMATION
  Report Type: 
  Country: None (occurrence: None)
  Receive Date: 20080513
  Receipt Date: 20080507
  Transmission Date: 20081010
  Serious: Yes (Death)
  Sender: FDA-Public Use
  Company Number: CLOF-1000149

PATIENT
  Age: 47 Year
  Sex: Male
  Weight: 62 kg

DRUGS (20)
  1. CLOLAR [Suspect]
     Indication: ACUTE LYMPHOCYTIC LEUKAEMIA
     Dosage: 40 MG/M2, QDX5, INTRAVENOUS
     Route: 042
     Dates: start: 20080327, end: 20080331
  2. CYTARABINE [Suspect]
     Indication: ACUTE LYMPHOCYTIC LEUKAEMIA
     Dosage: 1 G/M2, QDX5, INTRAVENOUS
     Route: 042
     Dates: start: 20080327, end: 20080331
  3. CALCIUM ACETATE (CALCIUM ACETATE) CAPSULE [Concomitant]
  4. DEXAMETHASONE SODIUM PHOSPHATE (DEXAMETHASONE SODIUM PHOSPHATE) EYE DR [Concomitant]
  5. FLUCONAZOLE [Concomitant]
  6. ACETAMINOPHEN [Concomitant]
  7. ACYCLOVIR (ACICLOVIR) TABLET [Concomitant]
  8. ALBUTEROL SULFATE (SALBUTAMOL SULFATE) UNKNOWN [Concomitant]
  9. ESCITALOPRAM (ESCITALOPRAM) TABLET [Concomitant]
  10. GLUCAGON (GLUCAGON) INJECTION [Concomitant]
  11. GLUCOSE (GLUCOSE) TABLET [Concomitant]
  12. HALOPERIDOL LACTATE (HALOPERIDOL LACTATE) INJECTION [Concomitant]
  13. INSULIN ASPART (INSULIN ASPART) INJECTION [Concomitant]
  14. NOVOLIN-N (INSULIN HUMAN INJECTION, ISOPHANE) INJECTION [Concomitant]
  15. LIDOCAINE VISCOUS (LIDOCAINE HYDROCHLORIDE) ORAL SOLUTION [Concomitant]
  16. LORAZEPAM [Concomitant]
  17. MORPHINE (MORPHINE) INJECTION [Concomitant]
  18. NICOTINE [Concomitant]
  19. OXYCODONE (OXYCODONE) TABLET [Concomitant]
  20. PHENOL (PHENOL) UNKNOWN [Concomitant]

REACTIONS (10)
  - CULTURE URINE POSITIVE [None]
  - DIALYSIS [None]
  - ENTEROCOCCAL INFECTION [None]
  - HYPOXIA [None]
  - NEUTROPENIC INFECTION [None]
  - RENAL FAILURE [None]
  - RESPIRATORY FAILURE [None]
  - SEPSIS SYNDROME [None]
  - STAPHYLOCOCCAL INFECTION [None]
  - STREPTOCOCCAL INFECTION [None]
